FAERS Safety Report 10253915 (Version 1)
Quarter: 2014Q2

REPORT INFORMATION
  Report Type: Spontaneous
  Country: DE (occurrence: DE)
  Receive Date: 20140623
  Receipt Date: 20140623
  Transmission Date: 20141212
  Serious: Yes (Congenital Anomaly)
  Sender: FDA-Public Use
  Company Number: GXKR2014DE002352

PATIENT
  Sex: Female
  Weight: 3.32 kg

DRUGS (3)
  1. DOXYCYCLINE [Suspect]
     Indication: CHLAMYDIAL INFECTION
     Dosage: 200 [MG/D ] (17.5 - 18.2 GESTATIONAL WEEK)
     Route: 064
     Dates: start: 20130726, end: 20130730
  2. FOLIO [Concomitant]
     Indication: PROPHYLAXIS OF NEURAL TUBE DEFECT
     Dosage: 0.4 [MG/D ] (6.1 - 12. GESTATIONAL WEEK)
     Route: 064
  3. ERYTHROMYCIN [Concomitant]
     Indication: CHLAMYDIAL INFECTION
     Dosage: 1500 [MG/D ] (18.2 - 19.5 GESTATIONAL WEEK)
     Route: 064
     Dates: start: 20130730, end: 20130809

REACTIONS (1)
  - Craniosynostosis [Not Recovered/Not Resolved]
